FAERS Safety Report 7408696-7 (Version None)
Quarter: 2011Q2

REPORT INFORMATION
  Report Type: 
  Country: None (occurrence: None)
  Receive Date: 20110404
  Receipt Date: 20110315
  Transmission Date: 20111010
  Serious: Yes (Hospitalization)
  Sender: FDA-Public Use
  Company Number: 8044596

PATIENT
  Sex: Female
  Weight: 122 kg

DRUGS (16)
  1. MOBIC [Concomitant]
  2. INSULIN [Concomitant]
  3. METHOTREXATE [Concomitant]
  4. LORTAB [Concomitant]
  5. PREMPRO [Concomitant]
  6. DARVOCET [Concomitant]
  7. CERTOLIZUMAB PEGOL [Suspect]
     Indication: RHEUMATOID ARTHRITIS
     Dosage: (200 MG 1X/2 WEEKS SUBCUTANEOUS)
     Route: 058
     Dates: start: 20081111, end: 20090408
  8. PREDNISONE [Concomitant]
  9. FOLIC ACID [Concomitant]
  10. VITAMIN B-12 [Concomitant]
  11. LEXAPRO [Concomitant]
  12. METFORMIN [Concomitant]
  13. GLIMEPIRIDE [Concomitant]
  14. LISINOPRIL [Concomitant]
  15. PRAVACHOL [Concomitant]
  16. VALIUM [Concomitant]

REACTIONS (10)
  - DIABETES MELLITUS INADEQUATE CONTROL [None]
  - LUPUS-LIKE SYNDROME [None]
  - DIASTOLIC DYSFUNCTION [None]
  - URINARY TRACT INFECTION [None]
  - PYREXIA [None]
  - CORONARY ARTERY OCCLUSION [None]
  - HEADACHE [None]
  - PERICARDIAL EFFUSION [None]
  - KIDNEY INFECTION [None]
  - VOMITING [None]
